FAERS Safety Report 4964442-8 (Version None)
Quarter: 2006Q2

REPORT INFORMATION
  Report Type: 
  Country: None (occurrence: None)
  Receive Date: 20060406
  Receipt Date: 20060324
  Transmission Date: 20061013
  Serious: Yes (Death)
  Sender: FDA-Public Use
  Company Number: IL-NOVOPROD-251866

PATIENT
  Age: 65 Year
  Sex: Male

DRUGS (2)
  1. NOVOSEVEN [Suspect]
     Indication: HAEMORRHAGE
     Dosage: 4.8 MG, QD
     Dates: start: 20060301, end: 20060301
  2. BLOOD CELLS, PACKED HUMAN [Concomitant]
     Indication: HAEMORRHAGE

REACTIONS (1)
  - EMBOLISM [None]
